FAERS Safety Report 14977332 (Version 3)
Quarter: 2018Q3

REPORT INFORMATION
  Report Type: Spontaneous
  Country: US (occurrence: US)
  Receive Date: 20180606
  Receipt Date: 20180716
  Transmission Date: 20181010
  Serious: No
  Sender: FDA-Public Use
  Company Number: PHEH2018US021672

PATIENT
  Sex: Female

DRUGS (1)
  1. TIMOLOL. [Suspect]
     Active Substance: TIMOLOL
     Indication: GLAUCOMA
     Route: 047

REACTIONS (2)
  - Overdose [Unknown]
  - Product container issue [Unknown]
